FAERS Safety Report 6661396-3 (Version None)
Quarter: 2010Q1

REPORT INFORMATION
  Report Type: 
  Country: None (occurrence: None)
  Receive Date: 20100331
  Receipt Date: 20100315
  Transmission Date: 20100710
  Serious: No
  Sender: FDA-Public Use
  Company Number: US-BAYER-201016670NA

PATIENT
  Age: 41 Year
  Sex: Male
  Weight: 111 kg

DRUGS (2)
  1. MAGNEVIST [Suspect]
     Indication: NUCLEAR MAGNETIC RESONANCE IMAGING BRAIN
     Dosage: TOTAL DAILY DOSE: 20 ML  UNIT DOSE: 100 ML
     Route: 042
     Dates: start: 20100312, end: 20100312
  2. DIAZEPAM [Concomitant]
     Indication: CLAUSTROPHOBIA
     Dosage: AS USED: 10 MG
     Route: 048
     Dates: start: 20100312, end: 20100312

REACTIONS (1)
  - URTICARIA [None]
